FAERS Safety Report 10088345 (Version 2)
Quarter: 2014Q2

REPORT INFORMATION
  Report Type: Report from Study
  Country: FR (occurrence: FR)
  Receive Date: 20140421
  Receipt Date: 20140421
  Transmission Date: 20141212
  Serious: Yes (Hospitalization, Other)
  Sender: FDA-Public Use
  Company Number: FR-ROCHE-1164288

PATIENT
  Age: 75 Year
  Sex: Female

DRUGS (9)
  1. RITUXIMAB [Suspect]
     Indication: RHEUMATOID ARTHRITIS
     Route: 042
     Dates: start: 20081020, end: 20100609
  2. CORTANCYL [Concomitant]
     Route: 065
  3. CORTANCYL [Concomitant]
     Route: 065
  4. TAHOR [Concomitant]
     Dosage: 20 MG/L
     Route: 065
  5. ABATACEPT [Concomitant]
  6. IMUREL [Concomitant]
  7. SPECIAFOLDINE [Concomitant]
  8. INEXIUM [Concomitant]
  9. HYDROCORTANCYL [Concomitant]

REACTIONS (29)
  - Cardiac failure [Recovered/Resolved]
  - Bronchopneumonia [Recovered/Resolved]
  - Genitourinary tract infection [Unknown]
  - Renal failure [Recovered/Resolved]
  - Urinary tract infection bacterial [Recovered/Resolved]
  - Hepatitis [Recovered/Resolved]
  - Cystitis [Unknown]
  - Eosinophilia [Unknown]
  - Sinus tachycardia [Recovered/Resolved]
  - Rectal haemorrhage [Recovered/Resolved]
  - Haemorrhoids [Recovered/Resolved]
  - Large intestine polyp [Not Recovered/Not Resolved]
  - Gastritis [Not Recovered/Not Resolved]
  - Gastric polyps [Not Recovered/Not Resolved]
  - Hypercalcaemia [Not Recovered/Not Resolved]
  - Escherichia urinary tract infection [Unknown]
  - Bursitis [Recovered/Resolved]
  - Asthenia [Recovered/Resolved]
  - Weight decreased [Unknown]
  - Decreased appetite [Unknown]
  - Pain in jaw [Unknown]
  - Pollakiuria [Recovered/Resolved]
  - Diarrhoea [Recovered/Resolved]
  - Pyrexia [Recovered/Resolved]
  - Chills [Recovered/Resolved]
  - Cough [Recovered/Resolved]
  - Constipation [Recovered/Resolved]
  - Oedema peripheral [Recovered/Resolved]
  - Urinary tract infection [Recovered/Resolved]
